FAERS Safety Report 6913625-6 (Version None)
Quarter: 2010Q3

REPORT INFORMATION
  Report Type: 
  Country: None (occurrence: None)
  Receive Date: 20100809
  Receipt Date: 20100804
  Transmission Date: 20110219
  Serious: Yes (Death)
  Sender: FDA-Public Use
  Company Number: CN-JNJFOC-20100801318

PATIENT
  Age: 23 Year
  Sex: Female

DRUGS (4)
  1. SPORANOX [Suspect]
     Indication: FUNGAL INFECTION
     Route: 041
  2. SPORANOX [Suspect]
     Route: 041
  3. SPORANOX [Suspect]
     Dosage: 25 ML STRENGTH
     Route: 041
  4. SPORANOX [Suspect]
     Route: 041

REACTIONS (5)
  - DEATH [None]
  - HYPERHIDROSIS [None]
  - JAUNDICE [None]
  - PALLOR [None]
  - PERICARDIAL EFFUSION [None]
